FAERS Safety Report 12691559 (Version 3)
Quarter: 2020Q3

REPORT INFORMATION
  Report Type: Spontaneous
  Country: US (occurrence: US)
  Receive Date: 20160826
  Receipt Date: 20200731
  Transmission Date: 20201102
  Serious: Yes (Death, Hospitalization, Other)
  Sender: FDA-Public Use
  Company Number: US-JNJFOC-20160821679

PATIENT
  Age: 71 Year
  Sex: Male

DRUGS (3)
  1. XARELTO [Suspect]
     Active Substance: RIVAROXABAN
     Indication: THROMBOSIS PROPHYLAXIS
     Route: 048
     Dates: start: 20150210, end: 20150626
  2. XARELTO [Suspect]
     Active Substance: RIVAROXABAN
     Indication: THROMBOSIS PROPHYLAXIS
     Route: 048
     Dates: end: 20150706
  3. XARELTO [Suspect]
     Active Substance: RIVAROXABAN
     Route: 048

REACTIONS (2)
  - Anaemia [Recovering/Resolving]
  - Haematoma [Unknown]

NARRATIVE: CASE EVENT DATE: 20150517
